FAERS Safety Report 23923195 (Version 1)
Quarter: 2024Q2

REPORT INFORMATION
  Report Type: Report from Study
  Country: US (occurrence: US)
  Receive Date: 20240531
  Receipt Date: 20240531
  Transmission Date: 20240716
  Serious: Yes (Other)
  Sender: FDA-Public Use
  Company Number: US-TEVA-VS-3202058

PATIENT
  Sex: Male

DRUGS (14)
  1. AUSTEDO [Suspect]
     Active Substance: DEUTETRABENAZINE
     Indication: Tardive dyskinesia
     Dosage: TAKE 1 TABLET BY MOUTH TWICE A DAY WITH FOOD
     Route: 048
  2. Stiolto Resp [Concomitant]
     Dosage: 2.5-2.5 M
  3. Divalproex S [Concomitant]
  4. IPRATROPIUM [Concomitant]
     Active Substance: IPRATROPIUM
     Dosage: 0.5 - 2.5
  5. Metoprolol S [Concomitant]
  6. QUETIAPINE FUMARATE [Concomitant]
     Active Substance: QUETIAPINE FUMARATE
  7. ELIQUIS [Concomitant]
     Active Substance: APIXABAN
  8. Albuterol SU [Concomitant]
     Dosage: AER 108
  9. Memantine HC [Concomitant]
  10. NUEDEXTA [Concomitant]
     Active Substance: DEXTROMETHORPHAN HYDROBROMIDE\QUINIDINE SULFATE
     Dosage: 10-20 MG
  11. ROSUVASTATIN [Concomitant]
     Active Substance: ROSUVASTATIN
  12. VENLAFAXINE [Concomitant]
     Active Substance: VENLAFAXINE HYDROCHLORIDE
  13. CLONAZEPAM [Concomitant]
     Active Substance: CLONAZEPAM
  14. RIVASTIGMINE [Concomitant]
     Active Substance: RIVASTIGMINE
     Dosage: 13.3 MG/2

REACTIONS (2)
  - Dementia [Not Recovered/Not Resolved]
  - Dyskinesia [Not Recovered/Not Resolved]
